FAERS Safety Report 17624700 (Version 2)
Quarter: 2020Q2

REPORT INFORMATION
  Report Type: Report from Study
  Country: MX (occurrence: MX)
  Receive Date: 20200403
  Receipt Date: 20200408
  Transmission Date: 20200713
  Serious: Yes (Other)
  Sender: FDA-Public Use
  Company Number: MX-009507513-2004MEX001095

PATIENT
  Age: 73 Year
  Sex: Female
  Weight: 64 kg

DRUGS (3)
  1. JANUVIA [Suspect]
     Active Substance: SITAGLIPTIN PHOSPHATE
     Indication: BLOOD GLUCOSE INCREASED
     Dosage: 100 MILLIGRAM (1 TABLET) ONCE DAILY, IN THE AFTERNOON
     Route: 048
     Dates: start: 2019, end: 20200330
  2. TELMISARTAN. [Concomitant]
     Active Substance: TELMISARTAN
     Indication: BLOOD PRESSURE ABNORMAL
     Dosage: 1 TABLET DAILY
     Route: 048
  3. ELATEC [Concomitant]
     Indication: VARICOSE VEIN
     Dosage: 1000 MILLIGRAM

REACTIONS (3)
  - Diabetes mellitus inadequate control [Unknown]
  - Bronchial disorder [Unknown]
  - Intentional product misuse [Unknown]

NARRATIVE: CASE EVENT DATE: 202002
